FAERS Safety Report 10562105 (Version 2)
Quarter: 2014Q4

REPORT INFORMATION
  Report Type: Spontaneous
  Country: GB (occurrence: GB)
  Receive Date: 20141104
  Receipt Date: 20141126
  Transmission Date: 20150529
  Serious: Yes (Disabling)
  Sender: FDA-Public Use
  Company Number: GB-MICRO LABS LIMITED-BB2014-00894

PATIENT
  Age: 59 Year
  Sex: Male

DRUGS (1)
  1. SIMVASTATIN. [Suspect]
     Active Substance: SIMVASTATIN
     Indication: BLOOD CHOLESTEROL INCREASED
     Dosage: UNK
     Route: 048
     Dates: start: 201302

REACTIONS (9)
  - Fatigue [Unknown]
  - Muscular weakness [Unknown]
  - Balance disorder [Unknown]
  - Self esteem decreased [Unknown]
  - Myalgia [Unknown]
  - Insomnia [Unknown]
  - Job dissatisfaction [Unknown]
  - Quality of life decreased [Unknown]
  - Adverse event [Unknown]
